FAERS Safety Report 11456427 (Version 3)
Quarter: 2015Q4

REPORT INFORMATION
  Report Type: Spontaneous
  Country: US (occurrence: US)
  Receive Date: 20150903
  Receipt Date: 20151116
  Transmission Date: 20160304
  Serious: No
  Sender: FDA-Public Use
  Company Number: US-PFIZER INC-2015283739

PATIENT
  Age: 72 Year
  Sex: Male

DRUGS (8)
  1. LYRICA [Suspect]
     Active Substance: PREGABALIN
     Dosage: 75 MG, DAILY
  2. LYRICA [Suspect]
     Active Substance: PREGABALIN
     Dosage: 300 MG, 2X/DAY
  3. LYRICA [Suspect]
     Active Substance: PREGABALIN
     Dosage: 70 MG, 1X/DAY
  4. LYRICA [Suspect]
     Active Substance: PREGABALIN
     Indication: PAIN
     Dosage: 150 MG, DAILY
  5. LYRICA [Suspect]
     Active Substance: PREGABALIN
     Dosage: 225 MG, DAILY
  6. LYRICA [Suspect]
     Active Substance: PREGABALIN
     Dosage: 300 MG, 2X/DAY
  7. LYRICA [Suspect]
     Active Substance: PREGABALIN
     Indication: POLYNEUROPATHY
     Dosage: 25 MG, DAILY
  8. LYRICA [Suspect]
     Active Substance: PREGABALIN
     Dosage: 300 MG TWICE A DAY, MORNING AND EVENING, AND 75MG AT NOON TIME

REACTIONS (10)
  - Pain [Unknown]
  - Pain in extremity [Unknown]
  - Dyspnoea [Unknown]
  - Muscular weakness [Unknown]
  - Overdose [Unknown]
  - Dysstasia [Unknown]
  - Condition aggravated [Unknown]
  - Drug withdrawal syndrome [Unknown]
  - Drug ineffective for unapproved indication [Not Recovered/Not Resolved]
  - Thinking abnormal [Unknown]
